FAERS Safety Report 17046606 (Version 1)
Quarter: 2019Q4

REPORT INFORMATION
  Report Type: Report from Study
  Country: CA (occurrence: CA)
  Receive Date: 20191119
  Receipt Date: 20191119
  Transmission Date: 20200122
  Serious: No
  Sender: FDA-Public Use
  Company Number: CA-BEH-2019109583

PATIENT
  Sex: Female

DRUGS (14)
  1. AMITRIPTYLINE [Concomitant]
     Active Substance: AMITRIPTYLINE
  2. HIZENTRA [Suspect]
     Active Substance: HUMAN IMMUNOGLOBULIN G
     Indication: SYSTEMIC LUPUS ERYTHEMATOSUS
     Dosage: 18 GRAM, QW
     Route: 058
     Dates: start: 20180326
  3. HIZENTRA [Suspect]
     Active Substance: HUMAN IMMUNOGLOBULIN G
     Indication: RHEUMATOID ARTHRITIS
  4. PLAQUENIL [Concomitant]
     Active Substance: HYDROXYCHLOROQUINE SULFATE
  5. FLOVENT [Concomitant]
     Active Substance: FLUTICASONE PROPIONATE
  6. BACLOFEN. [Concomitant]
     Active Substance: BACLOFEN
  7. IRON [Concomitant]
     Active Substance: IRON
     Dosage: 1 DOSAGE FORM EVERY 2 MONTH
     Route: 065
  8. TOPIRAMATE. [Concomitant]
     Active Substance: TOPIRAMATE
  9. VENTOLINE [SALBUTAMOL] [Concomitant]
     Active Substance: ALBUTEROL SULFATE
  10. SERTRALINE [Concomitant]
     Active Substance: SERTRALINE HYDROCHLORIDE
  11. LYRICA [Concomitant]
     Active Substance: PREGABALIN
  12. CLONAZEPAM. [Concomitant]
     Active Substance: CLONAZEPAM
  13. PREVACID [Concomitant]
     Active Substance: LANSOPRAZOLE
  14. IRON [Concomitant]
     Active Substance: IRON
     Dosage: 1 DOSAGE FORM, TOT
     Route: 065
     Dates: start: 201910, end: 201910

REACTIONS (4)
  - Product use in unapproved indication [Unknown]
  - Pain [Recovered/Resolved]
  - Fatigue [Not Recovered/Not Resolved]
  - No adverse event [Unknown]
